FAERS Safety Report 18266084 (Version 1)
Quarter: 2020Q3

REPORT INFORMATION
  Report Type: Report from Study
  Country: US (occurrence: US)
  Receive Date: 20200915
  Receipt Date: 20200915
  Transmission Date: 20201103
  Serious: Yes (Other)
  Sender: FDA-Public Use
  Company Number: US-PFIZER INC-2019277633

PATIENT
  Age: 72 Year
  Sex: Female

DRUGS (2)
  1. IBRANCE [Suspect]
     Active Substance: PALBOCICLIB
     Indication: BREAST CANCER
     Dosage: 125 MG, CYCLIC (DAILY, FOR 21 DAYS OF A 28 DAY CYCLE)
     Route: 048
     Dates: start: 20181215
  2. IBRANCE [Suspect]
     Active Substance: PALBOCICLIB
     Dosage: 125 MG, CYCLIC (DAILY, FOR 21 DAYS OF A 28 DAY CYCLE)
     Route: 048
     Dates: start: 202003, end: 202006

REACTIONS (7)
  - Dehydration [Unknown]
  - Red blood cell count decreased [Unknown]
  - White blood cell count decreased [Unknown]
  - Decreased appetite [Unknown]
  - Neoplasm progression [Unknown]
  - Visual impairment [Unknown]
  - Asthenia [Unknown]

NARRATIVE: CASE EVENT DATE: 2020
